FAERS Safety Report 6279798-6 (Version None)
Quarter: 2009Q3

REPORT INFORMATION
  Report Type: 
  Country: None (occurrence: None)
  Receive Date: 20090723
  Receipt Date: 20090717
  Transmission Date: 20100115
  Serious: Yes (Death, Other)
  Sender: FDA-Public Use
  Company Number: US-PFIZER INC-2009243067

PATIENT
  Sex: Female

DRUGS (1)
  1. DETROL LA [Suspect]

REACTIONS (5)
  - ANXIETY [None]
  - COGNITIVE DISORDER [None]
  - DEATH [None]
  - DEPRESSION [None]
  - PARANOIA [None]
